FAERS Safety Report 9410989 (Version 1)
Quarter: 2013Q3

REPORT INFORMATION
  Report Type: Spontaneous
  Country: ES (occurrence: ES)
  Receive Date: 20130719
  Receipt Date: 20130719
  Transmission Date: 20140515
  Serious: Yes (Hospitalization)
  Sender: FDA-Public Use
  Company Number: ES-B.I. PHARMACEUTICALS,INC./RIDGEFIELD-2013-ES-00353ES

PATIENT
  Age: 75 Year
  Sex: Female

DRUGS (4)
  1. MIRAPEXIN [Suspect]
     Indication: PARKINSON^S DISEASE
     Dosage: 1.05 MG
     Route: 048
     Dates: start: 2013, end: 201305
  2. GABAPENTINA [Concomitant]
     Indication: PARKINSON^S DISEASE
     Dosage: 300 MG
     Route: 048
     Dates: start: 20120713
  3. AMANTADINE LEVEL [Concomitant]
     Indication: PARKINSON^S DISEASE
     Dosage: 300 MG
     Route: 048
     Dates: start: 20120514, end: 20130511
  4. STALEVO [Concomitant]
     Indication: PARKINSON^S DISEASE
     Dosage: STRENGTH:200MG/50MG/200MG. DAILY DOSE: 4DF
     Route: 048
     Dates: start: 20110209

REACTIONS (9)
  - Flushing [Recovered/Resolved]
  - On and off phenomenon [Recovered/Resolved]
  - Discomfort [Recovered/Resolved]
  - Pain in extremity [Recovered/Resolved]
  - Delusion [Recovered/Resolved]
  - Drug withdrawal syndrome [Recovered/Resolved]
  - Dizziness [Recovered/Resolved]
  - Hot flush [Recovered/Resolved]
  - Dopamine dysregulation syndrome [Unknown]
